FAERS Safety Report 4673347-1 (Version None)
Quarter: 2005Q2

REPORT INFORMATION
  Report Type: 
  Country: None (occurrence: None)
  Receive Date: 20050523
  Receipt Date: 20050506
  Transmission Date: 20051028
  Serious: Yes (Other)
  Sender: FDA-Public Use
  Company Number: DSA_26432_2005

PATIENT
  Age: 54 Year
  Sex: Female

DRUGS (10)
  1. ENALAPRIL MALEATE [Suspect]
     Indication: BLOOD PRESSURE INADEQUATELY CONTROLLED
     Dosage: 2.5 MG Q DAY PO
     Route: 048
  2. TACROLIMUS [Suspect]
     Indication: IMMUNOSUPPRESSION
  3. SIROLIMUS [Suspect]
     Indication: IMMUNOSUPPRESSION
     Dosage: 2 MG Q DAY
  4. ASPIRIN [Concomitant]
  5. ATENOLOL [Concomitant]
  6. EPOGEN [Concomitant]
  7. FELODIPINE [Concomitant]
  8. FUROSEMIDE [Concomitant]
  9. MYCOPHENOLATE MOFETIL [Concomitant]
  10. PREDNISONE TAB [Concomitant]

REACTIONS (7)
  - BLOOD CREATINE DECREASED [None]
  - COMPLICATIONS OF TRANSPLANTED KIDNEY [None]
  - FACE OEDEMA [None]
  - LOCALISED OEDEMA [None]
  - NEPHROPATHY TOXIC [None]
  - RENAL VESSEL DISORDER [None]
  - URTICARIA [None]
